FAERS Safety Report 6437209-1 (Version None)
Quarter: 2009Q4

REPORT INFORMATION
  Report Type: 
  Country: None (occurrence: None)
  Receive Date: 20091112
  Receipt Date: 20090820
  Transmission Date: 20100525
  Serious: No
  Sender: FDA-Public Use
  Company Number: A0803293A

PATIENT
  Age: 39 Year
  Sex: Female

DRUGS (3)
  1. TREXIMET [Suspect]
     Indication: MIGRAINE
     Dosage: 1TAB PER DAY
     Route: 048
     Dates: start: 20081101
  2. LORTAB [Concomitant]
  3. ZANAFLEX [Concomitant]

REACTIONS (2)
  - DYSMENORRHOEA [None]
  - MENSTRUAL DISORDER [None]
